FAERS Safety Report 9137840 (Version 1)
Quarter: 2013Q1

REPORT INFORMATION
  Report Type: Spontaneous
  Country: US (occurrence: US)
  Receive Date: 20130304
  Receipt Date: 20130304
  Transmission Date: 20140127
  Serious: Yes (Other)
  Sender: FDA-Public Use
  Company Number: PHEH2013US004794

PATIENT
  Sex: Male

DRUGS (10)
  1. EXFORGE [Suspect]
     Dosage: UNK UKN, UNK
  2. ZIAC [Concomitant]
  3. ACTOS [Concomitant]
  4. METFORMIN [Concomitant]
  5. BUSPAR [Concomitant]
  6. ASACOL [Concomitant]
  7. FOLIC ACID [Concomitant]
  8. AMBIEN [Concomitant]
  9. BABY ASPIRIN [Concomitant]
  10. HUMULIN R [Concomitant]

REACTIONS (2)
  - Diabetes mellitus [Unknown]
  - Crohn^s disease [Unknown]
